FAERS Safety Report 9336667 (Version 1)
Quarter: 2013Q2

REPORT INFORMATION
  Report Type: Report from Study
  Country: NL (occurrence: NL)
  Receive Date: 20130607
  Receipt Date: 20130607
  Transmission Date: 20140414
  Serious: Yes (Death)
  Sender: FDA-Public Use
  Company Number: PHHY2013NL057507

PATIENT
  Age: 83 Year
  Sex: Male

DRUGS (4)
  1. ZOMETA [Suspect]
     Indication: PROSTATE CANCER METASTATIC
     Dosage: 4 MG/ 100 ML ONCE EVERY 12 WEEKS
     Route: 042
  2. ZOMETA [Suspect]
     Dosage: 4 MG/ 100 ML ONCE EVERY 12 WEEKS
     Route: 042
     Dates: start: 20120725
  3. ZOMETA [Suspect]
     Dosage: 4 MG/ 100 ML ONCE EVERY 12 WEEKS
     Route: 042
     Dates: start: 20130110
  4. ZOMETA [Suspect]
     Dosage: 4 MG/ 100 ML ONCE EVERY 12 WEEKS
     Route: 042
     Dates: start: 20130409

REACTIONS (1)
  - Death [Fatal]
